FAERS Safety Report 6461815-1 (Version None)
Quarter: 2009Q4

REPORT INFORMATION
  Report Type: 
  Country: None (occurrence: None)
  Receive Date: 20091130
  Receipt Date: 20091118
  Transmission Date: 20100525
  Serious: Yes (Other)
  Sender: FDA-Public Use
  Company Number: PHHY2009AU27894

PATIENT
  Age: 74 Year
  Sex: Female

DRUGS (4)
  1. ACLASTA [Suspect]
     Dosage: UNK
     Route: 042
     Dates: start: 20090601
  2. PRAVASTATIN [Concomitant]
  3. LANTUS [Concomitant]
  4. SIMVASTATIN [Concomitant]

REACTIONS (6)
  - ACTIVITIES OF DAILY LIVING IMPAIRED [None]
  - BREAST PAIN [None]
  - CHEST PAIN [None]
  - PAIN [None]
  - PAIN IN JAW [None]
  - TOOTHACHE [None]
